FAERS Safety Report 8588940-3 (Version None)
Quarter: 2012Q3

REPORT INFORMATION
  Report Type: 
  Country: None (occurrence: None)
  Receive Date: 20120813
  Receipt Date: 20120802
  Transmission Date: 20120928
  Serious: Yes (Life-Threatening, Hospitalization)
  Sender: FDA-Public Use
  Company Number: GB-NOVOPROD-357207

PATIENT
  Age: 17 Year
  Sex: Female

DRUGS (3)
  1. NOVOMIX 30 [Suspect]
     Indication: TYPE 1 DIABETES MELLITUS
     Dosage: 1 DF, BID
     Route: 058
     Dates: start: 20120322, end: 20120723
  2. INSULATARD NPH HUMAN [Concomitant]
     Indication: TYPE 1 DIABETES MELLITUS
     Dosage: 1 DF, BID
     Route: 058
  3. ACTRAPID [Suspect]
     Indication: TYPE 1 DIABETES MELLITUS
     Route: 065

REACTIONS (4)
  - RASH ERYTHEMATOUS [None]
  - CONDITION AGGRAVATED [None]
  - ANGIOEDEMA [None]
  - DYSPNOEA [None]
